FAERS Safety Report 4342678-7 (Version None)
Quarter: 2004Q1

REPORT INFORMATION
  Report Type: 
  Country: None (occurrence: None)
  Receive Date: 20040213
  Receipt Date: 20031030
  Transmission Date: 20041129
  Serious: Yes (Other)
  Sender: FDA-Public Use
  Company Number: 350350

PATIENT
  Age: 44 Year
  Sex: Female
  Weight: 54.4 kg

DRUGS (2)
  1. PEGASYS [Suspect]
     Indication: HEPATITIS C
     Dosage: 180 MCG SUBCUTANEOUS
     Route: 058
     Dates: start: 20030915, end: 20031021
  2. COPEGUS [Suspect]
     Indication: HEPATITIS C
     Dosage: 400 MG 2 PER DAY ORAL
     Route: 048
     Dates: start: 20030915, end: 20031021

REACTIONS (1)
  - ERYTHEMA NODOSUM [None]
